FAERS Safety Report 16454284 (Version 1)
Quarter: 2019Q2

REPORT INFORMATION
  Report Type: Spontaneous
  Country: DE (occurrence: DE)
  Receive Date: 20190619
  Receipt Date: 20190619
  Transmission Date: 20190711
  Serious: Yes (Other)
  Sender: FDA-Public Use
  Company Number: PHHY2019DE137631

PATIENT

DRUGS (3)
  1. LAMOTRIGINE. [Suspect]
     Active Substance: LAMOTRIGINE
     Indication: FOETAL EXPOSURE DURING PREGNANCY
     Dosage: MATERNAL DOSE: 300 MG, QD (BIS 100) (0.- 21.4 GESTATIONAL WEEK)
     Route: 064
  2. L-THYROXIN [Concomitant]
     Active Substance: LEVOTHYROXINE SODIUM
     Indication: FOETAL EXPOSURE DURING PREGNANCY
     Dosage: MATERNAL DOSE: 10000 UG QD ((0.- 21.4 GESTATIONAL WEEK))
     Route: 064
     Dates: start: 20180307, end: 20180805
  3. FOLSAEURE [Concomitant]
     Active Substance: FOLIC ACID
     Indication: FOETAL EXPOSURE DURING PREGNANCY
     Dosage: MATERNAL DOSE: 5 MG, QD (0. - 6.5. GESTATIONAL WEEK)
     Route: 064
     Dates: start: 20180307, end: 20180423

REACTIONS (3)
  - Congenital uterine anomaly [Unknown]
  - Placental disorder [Recovered/Resolved]
  - Foetal growth restriction [Recovered/Resolved]
